FAERS Safety Report 8277087-1 (Version None)
Quarter: 2012Q2

REPORT INFORMATION
  Report Type: 
  Country: None (occurrence: None)
  Receive Date: 20120412
  Receipt Date: 20120410
  Transmission Date: 20120825
  Serious: Yes (Other)
  Sender: FDA-Public Use
  Company Number: PHHY2012CH026030

PATIENT
  Age: 47 Year
  Sex: Female

DRUGS (4)
  1. GABAPENTIN [Concomitant]
  2. IBUPROFEN TABLETS [Concomitant]
  3. GILENYA [Suspect]
     Indication: RELAPSING-REMITTING MULTIPLE SCLEROSIS
     Dosage: 0.5 MG, QD
     Route: 048
     Dates: start: 20120113
  4. PANTOPRAZOLE [Concomitant]

REACTIONS (5)
  - DYSPNOEA [None]
  - FALL [None]
  - SKELETAL INJURY [None]
  - ASTHMA [None]
  - LUNG DISORDER [None]
